FAERS Safety Report 19996459 (Version 1)
Quarter: 2021Q4

REPORT INFORMATION
  Report Type: Spontaneous
  Country: GB (occurrence: GB)
  Receive Date: 20211025
  Receipt Date: 20211025
  Transmission Date: 20220303
  Serious: Yes (Other)
  Sender: FDA-Public Use
  Company Number: None

PATIENT
  Age: 54 Year
  Sex: Male
  Weight: 70 kg

DRUGS (3)
  1. TOPAMAX [Interacting]
     Active Substance: TOPIRAMATE
     Indication: Epilepsy
     Route: 048
  2. BRIVIACT [Concomitant]
     Active Substance: BRIVARACETAM
     Indication: Product used for unknown indication
     Dosage: 100 MG. - MORNING, 100MG. - EVENING
     Route: 065
  3. ESLICARBAZEPINE [Concomitant]
     Active Substance: ESLICARBAZEPINE
     Indication: Product used for unknown indication
     Dosage: 1200MG. - EVENING
     Route: 065

REACTIONS (2)
  - Epilepsy [Recovering/Resolving]
  - Food interaction [Recovered/Resolved]
